FAERS Safety Report 8308056-0 (Version None)
Quarter: 2012Q2

REPORT INFORMATION
  Report Type: 
  Country: None (occurrence: None)
  Receive Date: 20120420
  Receipt Date: 20120409
  Transmission Date: 20120825
  Serious: Yes (Other)
  Sender: FDA-Public Use
  Company Number: 2012P1012427

PATIENT
  Age: 52 Year
  Sex: Female

DRUGS (3)
  1. MORPHINE [Suspect]
     Indication: BACK PAIN
     Dosage: 6 MG;QD;INTH ; 5-11 MG;QD;INTH ; 7 MG;QD;INTH ; 160 MG;QD
     Route: 037
     Dates: start: 20050801
  2. HYDROMORPHONE HCL [Suspect]
     Indication: BACK PAIN
     Dosage: 2.5 MG;QD;INTH ; 5.2 MG;QD;INTH
     Route: 037
  3. ZICONITIDE (NO PREF. NAME) [Suspect]
     Indication: BACK PAIN
     Dosage: 4 UG;QD;INTH ; 9.6 UG;QD;INTH
     Route: 037

REACTIONS (12)
  - QUALITY OF LIFE DECREASED [None]
  - DEVICE DISLOCATION [None]
  - INFUSION SITE MASS [None]
  - NEURALGIA [None]
  - CAUDA EQUINA SYNDROME [None]
  - CHEST PAIN [None]
  - RESTLESSNESS [None]
  - BACK PAIN [None]
  - CENTRAL NERVOUS SYSTEM LESION [None]
  - SPINAL CORD COMPRESSION [None]
  - SCIATICA [None]
  - CONDITION AGGRAVATED [None]
